FAERS Safety Report 19292067 (Version 1)
Quarter: 2021Q2

REPORT INFORMATION
  Report Type: Spontaneous
  Country: US (occurrence: US)
  Receive Date: 20210524
  Receipt Date: 20210524
  Transmission Date: 20210717
  Serious: No
  Sender: FDA-Public Use
  Company Number: US-TEVA-2021-US-1909086

PATIENT
  Age: 42 Year
  Sex: Male

DRUGS (1)
  1. TESTOSTERONE TEVA [Suspect]
     Active Substance: TESTOSTERONE
     Indication: TESTICULAR FAILURE
     Dosage: GEL 1% 5G SACHETS
     Route: 065
     Dates: start: 201803

REACTIONS (1)
  - Blood testosterone decreased [Unknown]

NARRATIVE: CASE EVENT DATE: 20210422
